FAERS Safety Report 13194158 (Version 1)
Quarter: 2017Q1

REPORT INFORMATION
  Report Type: Report from Study
  Country: None (occurrence: GB)
  Receive Date: 20170207
  Receipt Date: 20170207
  Transmission Date: 20170428
  Serious: Yes (Hospitalization, Other)
  Sender: FDA-Public Use
  Company Number: GB-ABBVIE-17K-167-1861897-00

PATIENT
  Age: 51 Year
  Sex: Male

DRUGS (2)
  1. DUODOPA [Suspect]
     Active Substance: CARBIDOPA\LEVODOPA
     Indication: PARKINSON^S DISEASE
     Dosage: 1 X 100ML CASSETTE
     Route: 050
     Dates: end: 20170128
  2. DUODOPA [Suspect]
     Active Substance: CARBIDOPA\LEVODOPA
     Dosage: DOSE ALTERED BY NURSE AND TURNED DOWN (UNSPECIFIED)
     Route: 050
     Dates: start: 20170128

REACTIONS (9)
  - Hallucination [Unknown]
  - Device use error [Unknown]
  - Device issue [Unknown]
  - Haematemesis [Unknown]
  - Paranoia [Unknown]
  - Haematemesis [Unknown]
  - Heart rate irregular [Unknown]
  - Dyspnoea [Unknown]
  - Hospitalisation [Unknown]

NARRATIVE: CASE EVENT DATE: 20170129
